FAERS Safety Report 20923602 (Version 1)
Quarter: 2022Q2

REPORT INFORMATION
  Report Type: Spontaneous
  Country: GB (occurrence: GB)
  Receive Date: 20220607
  Receipt Date: 20220607
  Transmission Date: 20220720
  Serious: Yes (Hospitalization, Other)
  Sender: FDA-Public Use
  Company Number: GB-MLMSERVICE-20220525-3576217-1

PATIENT
  Sex: Female

DRUGS (2)
  1. CISPLATIN [Suspect]
     Active Substance: CISPLATIN
     Indication: Osteosarcoma
  2. DOXORUBICIN [Concomitant]
     Active Substance: DOXORUBICIN
     Indication: Osteosarcoma

REACTIONS (2)
  - Renal tubular dysfunction [Unknown]
  - Off label use [Unknown]
